FAERS Safety Report 7596648-6 (Version None)
Quarter: 2011Q3

REPORT INFORMATION
  Report Type: 
  Country: None (occurrence: None)
  Receive Date: 20110708
  Receipt Date: 20110624
  Transmission Date: 20111222
  Serious: No
  Sender: FDA-Public Use
  Company Number: US-B.I. PHARMACEUTICALS,INC./RIDGEFIELD-2011-BP-11969BP

PATIENT
  Sex: Female
  Weight: 93.44 kg

DRUGS (1)
  1. MIRAPEX [Suspect]
     Indication: RESTLESS LEGS SYNDROME
     Dates: start: 20010601, end: 20110325

REACTIONS (7)
  - HYPERPHAGIA [None]
  - CHANGE IN SUSTAINED ATTENTION [None]
  - OBSESSIVE-COMPULSIVE DISORDER [None]
  - PATHOLOGICAL GAMBLING [None]
  - PAIN [None]
  - SUICIDAL IDEATION [None]
  - EMOTIONAL DISTRESS [None]
